FAERS Safety Report 18431463 (Version 2)
Quarter: 2020Q4

REPORT INFORMATION
  Report Type: Spontaneous
  Country: AR (occurrence: AR)
  Receive Date: 20201027
  Receipt Date: 20201102
  Transmission Date: 20210114
  Serious: Yes (Death, Hospitalization)
  Sender: FDA-Public Use
  Company Number: AR-EMD SERONO-9177354

PATIENT
  Age: 68 Year

DRUGS (2)
  1. AXITINIB [Suspect]
     Active Substance: AXITINIB
     Indication: RENAL CANCER METASTATIC
     Dates: start: 201911
  2. AVELUMAB [Suspect]
     Active Substance: AVELUMAB
     Indication: RENAL CANCER METASTATIC

REACTIONS (2)
  - Respiratory tract infection [Fatal]
  - Disease progression [Fatal]

NARRATIVE: CASE EVENT DATE: 20200420
